FAERS Safety Report 7504646-3 (Version None)
Quarter: 2011Q2

REPORT INFORMATION
  Report Type: 
  Country: None (occurrence: None)
  Receive Date: 20110525
  Receipt Date: 20110317
  Transmission Date: 20111010
  Serious: No
  Sender: FDA-Public Use
  Company Number: US-AMGEN-USASP2011010648

PATIENT
  Age: 59 Year
  Sex: Male
  Weight: 142 kg

DRUGS (2)
  1. NPLATE [Suspect]
     Indication: IDIOPATHIC THROMBOCYTOPENIC PURPURA
     Dates: start: 20110125, end: 20110215
  2. NPLATE [Suspect]
     Dates: start: 20110125, end: 20110215

REACTIONS (1)
  - WEIGHT DECREASED [None]
